FAERS Safety Report 24649844 (Version 2)
Quarter: 2024Q4

REPORT INFORMATION
  Report Type: Report from Study
  Country: US (occurrence: US)
  Receive Date: 20241121
  Receipt Date: 20241227
  Transmission Date: 20250115
  Serious: No
  Sender: TAKEDA
  Company Number: US-TAKEDA-2024TUS114042

PATIENT
  Sex: Male

DRUGS (1)
  1. MARIBAVIR [Suspect]
     Active Substance: MARIBAVIR
     Indication: Cytomegalovirus infection
     Dosage: 400 MILLIGRAM, BID
     Dates: start: 20241119

REACTIONS (6)
  - Gait disturbance [Unknown]
  - Anxiety [Unknown]
  - Hypokinesia [Unknown]
  - Claustrophobia [Unknown]
  - Memory impairment [Unknown]
  - Fatigue [Unknown]
